FAERS Safety Report 7756312-7 (Version None)
Quarter: 2011Q3

REPORT INFORMATION
  Report Type: 
  Country: None (occurrence: None)
  Receive Date: 20110916
  Receipt Date: 20110907
  Transmission Date: 20111222
  Serious: Yes (Hospitalization)
  Sender: FDA-Public Use
  Company Number: CZ-BRISTOL-MYERS SQUIBB COMPANY-16063208

PATIENT
  Age: 52 Year
  Sex: Female
  Weight: 55 kg

DRUGS (2)
  1. IRINOTECAN HCL [Suspect]
     Indication: COLORECTAL CANCER METASTATIC
     Dosage: LAST INF ON 08FEB11.
     Route: 042
     Dates: start: 20100222, end: 20110208
  2. CETUXIMAB [Suspect]
     Indication: COLORECTAL CANCER METASTATIC
     Dosage: NO OF INFUSION-41.LAST INF ON 06SEP11.
     Route: 042
     Dates: start: 20100222, end: 20110906

REACTIONS (1)
  - TACHYARRHYTHMIA [None]
